FAERS Safety Report 9914314 (Version 1)
Quarter: 2014Q1

REPORT INFORMATION
  Report Type: Spontaneous
  Country: NL (occurrence: None)
  Receive Date: 20140218
  Receipt Date: 20140218
  Transmission Date: 20141002
  Serious: Yes (Hospitalization)
  Sender: FDA-Public Use
  Company Number: NL-014692

PATIENT
  Age: 88 Year
  Sex: Male
  Weight: 74 kg

DRUGS (1)
  1. DESMOPRESSIN [Suspect]
     Indication: POLYURIA
     Dosage: (0.2 MG QD ORAL)?
     Route: 048
     Dates: start: 20131212

REACTIONS (2)
  - Aortic valve stenosis [None]
  - Unevaluable event [None]
